FAERS Safety Report 24571437 (Version 2)
Quarter: 2025Q1

REPORT INFORMATION
  Report Type: Report from Study
  Country: CA (occurrence: CA)
  Receive Date: 20241101
  Receipt Date: 20250122
  Transmission Date: 20250409
  Serious: Yes (Other)
  Sender: TAKEDA
  Company Number: CA-TAKEDA-2021TUS075924

PATIENT
  Age: 60 Year
  Sex: Female

DRUGS (21)
  1. VEDOLIZUMAB [Suspect]
     Active Substance: VEDOLIZUMAB
     Indication: Colitis ulcerative
  2. VEDOLIZUMAB [Suspect]
     Active Substance: VEDOLIZUMAB
     Dosage: 300 MILLIGRAM, Q4WEEKS
     Dates: start: 20211222
  3. VEDOLIZUMAB [Suspect]
     Active Substance: VEDOLIZUMAB
     Dosage: 300 MILLIGRAM, Q4WEEKS
  4. VEDOLIZUMAB [Suspect]
     Active Substance: VEDOLIZUMAB
     Dosage: 300 MILLIGRAM, Q4WEEKS
  5. VEDOLIZUMAB [Suspect]
     Active Substance: VEDOLIZUMAB
     Dosage: 300 MILLIGRAM, Q4WEEKS
  6. VEDOLIZUMAB [Suspect]
     Active Substance: VEDOLIZUMAB
     Dosage: 300 MILLIGRAM, Q4WEEKS
  7. PREDNISONE [Concomitant]
     Active Substance: PREDNISONE
  8. INVOKANA [Concomitant]
     Active Substance: CANAGLIFLOZIN
  9. INSULIN NOS [Concomitant]
     Active Substance: INSULIN NOS
     Dosage: UNK UNK, QD
  10. LIPITOR [Concomitant]
     Active Substance: ATORVASTATIN CALCIUM
  11. LISINOPRIL [Concomitant]
     Active Substance: LISINOPRIL
  12. METHOTREXATE [Concomitant]
     Active Substance: METHOTREXATE
  13. CANDESARTAN [Concomitant]
     Active Substance: CANDESARTAN
  14. METFORMIN [Concomitant]
     Active Substance: METFORMIN HYDROCHLORIDE
  15. ATORVASTATIN [Concomitant]
     Active Substance: ATORVASTATIN
  16. BISOPROLOL [Concomitant]
     Active Substance: BISOPROLOL
  17. LANTUS [Concomitant]
     Active Substance: INSULIN GLARGINE
  18. PANTOPRAZOLE [Concomitant]
     Active Substance: PANTOPRAZOLE
  19. OZEMPIC [Concomitant]
     Active Substance: SEMAGLUTIDE
  20. CITALOPRAM [Concomitant]
     Active Substance: CITALOPRAM
  21. XARELTO [Concomitant]
     Active Substance: RIVAROXABAN

REACTIONS (10)
  - Malaise [Unknown]
  - Diarrhoea [Recovered/Resolved]
  - Defaecation urgency [Recovered/Resolved]
  - Gastrooesophageal reflux disease [Unknown]
  - Sputum discoloured [Unknown]
  - Mucous stools [Unknown]
  - Frequent bowel movements [Recovered/Resolved]
  - Off label use [Unknown]
  - Blood test abnormal [Unknown]
  - Cough [Not Recovered/Not Resolved]

NARRATIVE: CASE EVENT DATE: 20211222
